FAERS Safety Report 6101473-9 (Version None)
Quarter: 2009Q1

REPORT INFORMATION
  Report Type: 
  Country: None (occurrence: None)
  Receive Date: 20090303
  Receipt Date: 20090303
  Transmission Date: 20090719
  Serious: No
  Sender: FDA-Public Use
  Company Number: None

PATIENT
  Age: 10 Year
  Sex: Male
  Weight: 29.0302 kg

DRUGS (1)
  1. TOPAMAX [Suspect]
     Indication: GRAND MAL CONVULSION
     Dosage: 50 MG. TWICE DAILY PO
     Route: 048
     Dates: start: 20090214, end: 20090216

REACTIONS (10)
  - AFFECT LABILITY [None]
  - ANGER [None]
  - CRYING [None]
  - DRUG PRESCRIBING ERROR [None]
  - DYSPHONIA [None]
  - HALLUCINATION [None]
  - ILL-DEFINED DISORDER [None]
  - IRRITABILITY [None]
  - MEDICATION ERROR [None]
  - OVERDOSE [None]
